FAERS Safety Report 23935879 (Version 1)
Quarter: 2024Q2

REPORT INFORMATION
  Report Type: Spontaneous
  Country: US (occurrence: US)
  Receive Date: 20240604
  Receipt Date: 20240604
  Transmission Date: 20240716
  Serious: No
  Sender: FDA-Public Use
  Company Number: US-ALMIRALL, LLC-2023AQU000092

PATIENT

DRUGS (1)
  1. CORDRAN [Suspect]
     Active Substance: FLURANDRENOLIDE
     Indication: Product used for unknown indication
     Dosage: UNK
     Route: 061

REACTIONS (6)
  - Mucosal inflammation [Unknown]
  - Haemorrhage [Unknown]
  - Rash [Unknown]
  - Incorrect dose administered [Unknown]
  - Product adhesion issue [Unknown]
  - Product quality issue [Unknown]
